FAERS Safety Report 14039197 (Version 1)
Quarter: 2017Q4

REPORT INFORMATION
  Report Type: Spontaneous
  Country: US (occurrence: US)
  Receive Date: 20171004
  Receipt Date: 20171004
  Transmission Date: 20180321
  Serious: No
  Sender: FDA-Public Use
  Company Number: US-INDIVIOR LIMITED-INDV-098600-2017

PATIENT
  Age: 27 Year
  Sex: Female

DRUGS (2)
  1. VIVITROL [Suspect]
     Active Substance: NALTREXONE
     Indication: PRODUCT USED FOR UNKNOWN INDICATION
     Dosage: UNK, ONCE MONTHLY
     Route: 051
  2. SUBOXONE [Suspect]
     Active Substance: BUPRENORPHINE HYDROCHLORIDE\NALOXONE HYDROCHLORIDE
     Indication: PRODUCT USED FOR UNKNOWN INDICATION
     Dosage: 8MG, ONCE A DAY
     Route: 051
     Dates: start: 201701

REACTIONS (4)
  - Intentional product use issue [Unknown]
  - Substance abuse [Unknown]
  - Therapeutic response unexpected [Unknown]
  - Somnolence [Unknown]

NARRATIVE: CASE EVENT DATE: 201701
